FAERS Safety Report 6386366-4 (Version None)
Quarter: 2009Q4

REPORT INFORMATION
  Report Type: 
  Country: None (occurrence: None)
  Receive Date: 20091002
  Receipt Date: 20090923
  Transmission Date: 20100525
  Serious: Yes (Other)
  Sender: FDA-Public Use
  Company Number: US-AMGEN-QUU364742

PATIENT
  Sex: Male

DRUGS (2)
  1. ENBREL [Suspect]
     Indication: PSORIATIC ARTHROPATHY
     Route: 058
     Dates: start: 20080821, end: 20090520
  2. ENBREL [Suspect]
     Indication: PSORIASIS

REACTIONS (6)
  - BALANCE DISORDER [None]
  - HEARING IMPAIRED [None]
  - HYPOAESTHESIA [None]
  - MUSCULAR WEAKNESS [None]
  - PSORIASIS [None]
  - VISUAL IMPAIRMENT [None]
